FAERS Safety Report 4369262-3 (Version None)
Quarter: 2004Q2

REPORT INFORMATION
  Report Type: 
  Country: None (occurrence: None)
  Receive Date: 20040603
  Receipt Date: 20040311
  Transmission Date: 20050107
  Serious: No
  Sender: FDA-Public Use
  Company Number: US-GLAXOSMITHKLINE-A0502367A

PATIENT
  Age: 39 Year
  Sex: Female

DRUGS (3)
  1. AUGMENTIN [Suspect]
     Indication: INFECTION PROPHYLAXIS
     Route: 048
     Dates: start: 20040304, end: 20040308
  2. FLONASE [Concomitant]
  3. CORTISONE [Concomitant]

REACTIONS (2)
  - DIARRHOEA [None]
  - NAUSEA [None]
